FAERS Safety Report 9215202 (Version 1)
Quarter: 2013Q2

REPORT INFORMATION
  Report Type: Spontaneous
  Country: JP (occurrence: JP)
  Receive Date: 20130405
  Receipt Date: 20130405
  Transmission Date: 20140414
  Serious: Yes (Life-Threatening, Hospitalization)
  Sender: FDA-Public Use
  Company Number: JP-ELI_LILLY_AND_COMPANY-JP_040302828

PATIENT
  Age: 43 Year
  Sex: Female
  Weight: 46 kg

DRUGS (8)
  1. GEMZAR [Suspect]
     Indication: PANCREATIC CARCINOMA STAGE III
     Dosage: 250 MG/M2, OTHER
     Route: 042
     Dates: start: 20011120, end: 20011211
  2. MS CONTIN [Concomitant]
     Indication: PANCREATIC CARCINOMA STAGE III
     Dosage: 90 MG, QD
     Route: 048
     Dates: start: 20011102, end: 20011217
  3. VOLTAREN                           /00372301/ [Concomitant]
     Indication: PANCREATIC CARCINOMA STAGE III
     Dosage: 25 MG, QD
     Route: 054
     Dates: start: 20011213, end: 20020116
  4. HALCION [Concomitant]
     Indication: INSOMNIA
     Dosage: 0.25 MG, QD
     Route: 048
     Dates: start: 20011104, end: 20011217
  5. MAGNESIUM OXIDE [Concomitant]
     Indication: CONSTIPATION
     Dosage: 500 MG, QD
     Route: 048
     Dates: start: 20011210, end: 20011217
  6. AMINOFLUID [Concomitant]
     Indication: DECREASED APPETITE
     Dosage: 1500 ML, QD
     Route: 042
     Dates: start: 20011114, end: 20011217
  7. GASTER                             /00706001/ [Concomitant]
     Indication: PROPHYLAXIS
     Dosage: 20 MG, QD
     Route: 042
     Dates: start: 20011117, end: 20020116
  8. VITAMEDIN INTRAVENOUS [Concomitant]
     Indication: VITAMIN SUPPLEMENTATION
     Dosage: UNK
     Route: 042
     Dates: start: 20011117, end: 20020116

REACTIONS (3)
  - Gastrointestinal haemorrhage [Recovered/Resolved]
  - Sepsis [Not Recovered/Not Resolved]
  - Cholangitis [Not Recovered/Not Resolved]
